FAERS Safety Report 25351844 (Version 1)
Quarter: 2025Q2

REPORT INFORMATION
  Report Type: Spontaneous
  Country: BR (occurrence: BR)
  Receive Date: 20250523
  Receipt Date: 20250523
  Transmission Date: 20250716
  Serious: Yes (Other)
  Sender: ANI
  Company Number: 2024-BR-000102

PATIENT
  Sex: Male
  Weight: 84 kg

DRUGS (2)
  1. FLUVOXAMINE MALEATE [Suspect]
     Active Substance: FLUVOXAMINE MALEATE
     Indication: Depression
     Route: 048
     Dates: start: 20240415
  2. FLUVOXAMINE MALEATE [Suspect]
     Active Substance: FLUVOXAMINE MALEATE
     Indication: Obsessive-compulsive disorder
     Route: 048
     Dates: start: 20240415

REACTIONS (12)
  - Chest discomfort [Unknown]
  - Feeling abnormal [Unknown]
  - Retching [Unknown]
  - Insomnia [Unknown]
  - Malaise [Unknown]
  - Heart rate increased [Unknown]
  - Feeling abnormal [Unknown]
  - Palpitations [Unknown]
  - Product quality issue [Unknown]
  - Feeding disorder [Unknown]
  - Weight decreased [Unknown]
  - Discomfort [Unknown]

NARRATIVE: CASE EVENT DATE: 20241005
